FAERS Safety Report 8018648-4 (Version None)
Quarter: 2012Q1

REPORT INFORMATION
  Report Type: 
  Country: None (occurrence: None)
  Receive Date: 20120103
  Receipt Date: 20111228
  Transmission Date: 20120608
  Serious: Yes (Death)
  Sender: FDA-Public Use
  Company Number: US-CELGENEUS-163-21880-11123595

PATIENT
  Sex: Female

DRUGS (9)
  1. AMLODIPINE BESY-BENAZEPRIL HCL [Concomitant]
     Route: 065
  2. ISOSORBIDE DINITRATE [Concomitant]
     Route: 065
  3. DEXAMETHASONE [Concomitant]
     Route: 065
  4. METOPROLOL TARTRATE [Concomitant]
     Route: 065
  5. WARFARIN SODIUM [Concomitant]
     Route: 065
  6. NITROSTAT [Concomitant]
     Route: 065
  7. CLONIDINE HCL [Concomitant]
     Route: 065
  8. REVLIMID [Suspect]
     Dosage: 5 MILLIGRAM
     Route: 048
     Dates: start: 20110517, end: 20110101
  9. RENAL MULTIVITAMIN FORMULA [Concomitant]
     Route: 065

REACTIONS (1)
  - DEATH [None]
